FAERS Safety Report 7773792-1 (Version None)
Quarter: 2011Q3

REPORT INFORMATION
  Report Type: 
  Country: None (occurrence: None)
  Receive Date: 20110923
  Receipt Date: 20110915
  Transmission Date: 20111222
  Serious: Yes (Hospitalization)
  Sender: FDA-Public Use
  Company Number: US-JNJFOC-20110906635

PATIENT
  Sex: Female
  Weight: 58.97 kg

DRUGS (3)
  1. STELARA [Suspect]
     Indication: PSORIASIS
     Route: 058
     Dates: start: 20100301
  2. ASPIRIN [Concomitant]
     Route: 048
     Dates: start: 20100301
  3. METHOTREXATE [Concomitant]
     Indication: PSORIASIS
     Route: 048

REACTIONS (4)
  - SPINAL CORD COMPRESSION [None]
  - INTERVERTEBRAL DISC PROTRUSION [None]
  - VISUAL IMPAIRMENT [None]
  - SPINAL DISORDER [None]
